FAERS Safety Report 8587912-2 (Version None)
Quarter: 2012Q3

REPORT INFORMATION
  Report Type: 
  Country: None (occurrence: None)
  Receive Date: 20120813
  Receipt Date: 20120803
  Transmission Date: 20120928
  Serious: No
  Sender: FDA-Public Use
  Company Number: US-BIOGENIDEC-2012BI029500

PATIENT
  Age: 19 Year
  Sex: Female

DRUGS (2)
  1. TYSABRI [Suspect]
     Indication: MULTIPLE SCLEROSIS
     Route: 042
     Dates: start: 20120802
  2. CONCERTA [Concomitant]

REACTIONS (4)
  - ARTHROPOD STING [None]
  - FEELING ABNORMAL [None]
  - ASTHENOPIA [None]
  - FATIGUE [None]
